FAERS Safety Report 10129912 (Version 1)
Quarter: 2014Q2

REPORT INFORMATION
  Report Type: Spontaneous
  Country: US (occurrence: US)
  Receive Date: 20140428
  Receipt Date: 20140428
  Transmission Date: 20141212
  Serious: No
  Sender: FDA-Public Use
  Company Number: US-PFIZER INC-2014110609

PATIENT
  Sex: Female

DRUGS (18)
  1. CHANTIX [Suspect]
     Dosage: 0.5 MG, UNK
  2. CHANTIX [Suspect]
     Dosage: 1 MG, UNK
  3. CHANTIX [Suspect]
     Dosage: 1 MG, 2X/DAY
     Route: 048
  4. LEVOMILNACIPRAN [Concomitant]
     Dosage: EVERY OTHER DAY
     Route: 048
  5. NEXIUM [Concomitant]
     Dosage: 20 MG, 2X/DAY
     Route: 048
  6. PHENERGAN WITH CODEINE [Concomitant]
     Indication: COUGH
     Dosage: 6.5-10MG/5ML SYRUP Q4H AS NEEDED
     Route: 048
  7. CARTIA XT [Concomitant]
     Dosage: 120 MG, 1X/DAY
     Route: 048
  8. ULTRAM [Concomitant]
     Indication: PAIN
     Dosage: 1 DF, Q6H AS NEEDED
     Route: 048
  9. CYMBALTA [Concomitant]
     Dosage: 20 MG, DAILY
     Route: 048
  10. NEURONTIN [Concomitant]
     Dosage: 600 MG, DAILY, EVENING
     Route: 048
  11. ZYRTEC [Concomitant]
     Dosage: 10 MG, DAILY
     Route: 048
  12. BENADRYL [Concomitant]
     Dosage: 25 MG, DAILY, BEDTIME
     Route: 048
  13. LIPITOR [Concomitant]
     Indication: BLOOD CHOLESTEROL
     Dosage: 10 MG, DAILY
     Route: 048
  14. CICLESONIDE [Concomitant]
     Dosage: 37 MG, DAILY
     Route: 045
  15. ALBUTEROL [Concomitant]
     Indication: WHEEZING
     Dosage: 2 PUFFS BY INHALATION Q4H AS NEEDE
     Route: 055
  16. FORMOTEROL FUMARATE/MOMETASONE FUROATE [Concomitant]
     Dosage: 2 PUFFS BY INHALATION
     Route: 055
  17. POLYETHYLENE GLYCOL [Concomitant]
     Dosage: 1 SCOOP BY MOUTH DAILY
  18. DUONEB [Suspect]
     Dosage: 0.5-2.5 (3) MG/3ML NEBULIZER SOLUTION
     Route: 055

REACTIONS (1)
  - Drug hypersensitivity [Unknown]
